FAERS Safety Report 4883571-0 (Version None)
Quarter: 2006Q1

REPORT INFORMATION
  Report Type: 
  Country: None (occurrence: None)
  Receive Date: 20060118
  Receipt Date: 20051207
  Transmission Date: 20060701
  Serious: Yes (Other)
  Sender: FDA-Public Use
  Company Number: US-MERCK-0512USA00941

PATIENT
  Age: 68 Year
  Sex: Female
  Weight: 106 kg

DRUGS (3)
  1. HYDRODIURIL [Concomitant]
     Indication: PAIN
     Route: 065
  2. VIOXX [Suspect]
     Indication: PAIN
     Route: 048
     Dates: start: 20010101, end: 20020101
  3. LEVOTHYROXINE SODIUM [Concomitant]
     Route: 065

REACTIONS (1)
  - CEREBROVASCULAR ACCIDENT [None]
